FAERS Safety Report 6835049-2 (Version None)
Quarter: 2010Q3

REPORT INFORMATION
  Report Type: 
  Country: None (occurrence: None)
  Receive Date: 20100713
  Receipt Date: 20100701
  Transmission Date: 20110219
  Serious: No
  Sender: FDA-Public Use
  Company Number: US-BIOGENIDEC-2010BI020479

PATIENT
  Age: 40 Year
  Sex: Female

DRUGS (1)
  1. TYSABRI [Suspect]
     Indication: MULTIPLE SCLEROSIS
     Route: 042
     Dates: start: 20080423

REACTIONS (6)
  - CYST [None]
  - DERMATITIS CONTACT [None]
  - HERPES ZOSTER [None]
  - INFECTED CYST [None]
  - PYREXIA [None]
  - STAPHYLOCOCCAL INFECTION [None]
